FAERS Safety Report 5118604-X (Version None)
Quarter: 2006Q4

REPORT INFORMATION
  Report Type: 
  Country: None (occurrence: None)
  Receive Date: 20061002
  Receipt Date: 20060926
  Transmission Date: 20070319
  Serious: Yes (Hospitalization)
  Sender: FDA-Public Use
  Company Number: US-GLAXOSMITHKLINE-A0621476A

PATIENT
  Age: 33 Year
  Sex: Male

DRUGS (2)
  1. IMITREX [Suspect]
     Indication: MIGRAINE
     Route: 048
     Dates: start: 20060919, end: 20060919
  2. NO CONCURRENT MEDICATION [Concomitant]

REACTIONS (7)
  - ASTHENIA [None]
  - BRADYPHRENIA [None]
  - CHEST DISCOMFORT [None]
  - DYSPNOEA [None]
  - HEART RATE DECREASED [None]
  - MALAISE [None]
  - MENTAL IMPAIRMENT [None]
